FAERS Safety Report 8613908-8 (Version None)
Quarter: 2012Q3

REPORT INFORMATION
  Report Type: 
  Country: None (occurrence: None)
  Receive Date: 20120823
  Receipt Date: 20120810
  Transmission Date: 20120928
  Serious: Yes (Hospitalization, Other)
  Sender: FDA-Public Use
  Company Number: US-009507513-1110USA03276

PATIENT

DRUGS (3)
  1. FOSAMAX [Suspect]
     Indication: OSTEOPOROSIS
     Dosage: 10 MG, QD
     Route: 048
     Dates: start: 19960101, end: 20010206
  2. FOSAMAX [Suspect]
     Dosage: 70 MG ORAL, QW
     Route: 048
     Dates: start: 20010207, end: 20080213
  3. FOSAMAX [Suspect]
     Dosage: 70 MG ORAL
     Route: 048
     Dates: start: 20080214, end: 20090801

REACTIONS (39)
  - HAEMORRHAGIC ANAEMIA [None]
  - LACERATION [None]
  - FALL [None]
  - IRRITABLE BOWEL SYNDROME [None]
  - AORTIC DILATATION [None]
  - CERVICAL SPINAL STENOSIS [None]
  - CELLULITIS [None]
  - DEVICE CONNECTION ISSUE [None]
  - TENDON CALCIFICATION [None]
  - OSTEOPENIA [None]
  - GASTRITIS [None]
  - CONSTIPATION [None]
  - OSTEOARTHRITIS [None]
  - DEPRESSION [None]
  - GASTROOESOPHAGEAL REFLUX DISEASE [None]
  - SPINAL COLUMN STENOSIS [None]
  - LACUNAR INFARCTION [None]
  - BLOOD CHOLESTEROL INCREASED [None]
  - MUSCULOSKELETAL PAIN [None]
  - LIMB DEFORMITY [None]
  - LUMBAR SPINAL STENOSIS [None]
  - CAROTID ARTERIOSCLEROSIS [None]
  - DEFORMITY [None]
  - CHONDROCALCINOSIS [None]
  - ECZEMA [None]
  - VULVOVAGINAL DRYNESS [None]
  - EXOSTOSIS [None]
  - BACK PAIN [None]
  - ALCOHOL ABUSE [None]
  - FRACTURE DELAYED UNION [None]
  - FEMUR FRACTURE [None]
  - ROTATOR CUFF SYNDROME [None]
  - CATARACT OPERATION [None]
  - GOUT [None]
  - HYPERTENSION [None]
  - INSOMNIA [None]
  - SPINAL OSTEOARTHRITIS [None]
  - CONSTIPATION PROPHYLAXIS [None]
  - MUSCLE SPASMS [None]
